FAERS Safety Report 13235561 (Version 1)
Quarter: 2017Q1

REPORT INFORMATION
  Report Type: Report from Study
  Country: CA (occurrence: CA)
  Receive Date: 20170215
  Receipt Date: 20170215
  Transmission Date: 20170428
  Serious: Yes (Other)
  Sender: FDA-Public Use
  Company Number: CA-UCBSA-120190

PATIENT
  Age: 55 Year
  Sex: Female
  Weight: 70 kg

DRUGS (2)
  1. CELEBREX [Concomitant]
     Active Substance: CELECOXIB
     Indication: PRODUCT USED FOR UNKNOWN INDICATION
     Dosage: UNK
  2. CERTOLIZUMAB PEGOL PSA [Suspect]
     Active Substance: CERTOLIZUMAB PEGOL
     Indication: PSORIATIC ARTHROPATHY
     Dosage: 400 MG, EV 2 WEEKS(QOW), WEEKS 0-2-4
     Route: 058
     Dates: start: 20140429

REACTIONS (4)
  - Hypersensitivity [Unknown]
  - Injection site reaction [Recovered/Resolved]
  - Myocardial necrosis marker increased [Not Recovered/Not Resolved]
  - Hepatitis [Unknown]

NARRATIVE: CASE EVENT DATE: 2014
